FAERS Safety Report 4941474-7 (Version None)
Quarter: 2006Q1

REPORT INFORMATION
  Report Type: 
  Country: None (occurrence: None)
  Receive Date: 20060310
  Receipt Date: 20060228
  Transmission Date: 20060701
  Serious: Yes (Hospitalization)
  Sender: FDA-Public Use
  Company Number: 2006PV009310

PATIENT
  Age: 59 Year
  Sex: Female

DRUGS (4)
  1. BYETTA [Suspect]
     Indication: DIABETES MELLITUS NON-INSULIN-DEPENDENT
     Dosage: 10 MG; BID; SC
     Route: 058
     Dates: start: 20060117
  2. GLUCOPHAGE [Concomitant]
  3. LANTUS [Concomitant]
  4. ACTOS [Concomitant]

REACTIONS (2)
  - ABDOMINAL PAIN UPPER [None]
  - LARGE INTESTINAL HAEMORRHAGE [None]
